FAERS Safety Report 10229851 (Version 4)
Quarter: 2014Q3

REPORT INFORMATION
  Report Type: Spontaneous
  Country: US (occurrence: None)
  Receive Date: 20140627
  Receipt Date: 20140707
  Transmission Date: 20150326
  Serious: Yes (Hospitalization)
  Sender: FDA-Public Use
  Company Number: 2014-US-006830

PATIENT
  Age: 23 Year
  Sex: Male

DRUGS (1)
  1. XYREM [Suspect]
     Active Substance: SODIUM OXYBATE
     Indication: INSOMNIA
     Dosage: 2.25 G, BID, ORAL
     Route: 048
     Dates: start: 201405, end: 201405

REACTIONS (10)
  - Anxiety [None]
  - Muscle spasms [None]
  - Insomnia [None]
  - Hypertension [None]
  - Inappropriate schedule of drug administration [None]
  - Arthralgia [None]
  - Chest pain [None]
  - Blood pressure increased [None]
  - Off label use [None]
  - Joint swelling [None]

NARRATIVE: CASE EVENT DATE: 201405
